FAERS Safety Report 16938574 (Version 1)
Quarter: 2019Q4

REPORT INFORMATION
  Report Type: Spontaneous
  Country: US (occurrence: US)
  Receive Date: 20191019
  Receipt Date: 20191019
  Transmission Date: 20200122
  Serious: Yes (Other)
  Sender: FDA-Public Use
  Company Number: US-TEVA-2019-US-1126067

PATIENT
  Age: 47 Year
  Sex: Female

DRUGS (1)
  1. DIAZEPAM. [Suspect]
     Active Substance: DIAZEPAM
     Route: 065

REACTIONS (3)
  - Coeliac disease [Unknown]
  - Therapeutic product effect decreased [Unknown]
  - Product substitution issue [Unknown]
